FAERS Safety Report 5282986-9 (Version None)
Quarter: 2007Q2

REPORT INFORMATION
  Report Type: 
  Country: None (occurrence: None)
  Receive Date: 20070402
  Receipt Date: 20070329
  Transmission Date: 20071010
  Serious: Yes (Hospitalization)
  Sender: FDA-Public Use
  Company Number: ES-BRISTOL-MYERS SQUIBB COMPANY-13731740

PATIENT
  Age: 76 Year
  Sex: Female

DRUGS (4)
  1. MAXIPIME [Suspect]
     Indication: RESPIRATORY DISORDER
     Route: 042
     Dates: start: 20070118, end: 20070122
  2. AMIKACIN SULFATE [Suspect]
     Indication: RESPIRATORY DISORDER
     Route: 048
     Dates: start: 20070118, end: 20070122
  3. KLEXANE [Concomitant]
     Indication: PROPHYLAXIS
     Route: 058
     Dates: start: 20070104, end: 20070130
  4. VOLUVEN [Concomitant]
     Route: 042
     Dates: start: 20070104, end: 20070130

REACTIONS (2)
  - PRURITUS [None]
  - RASH [None]
